FAERS Safety Report 5515895-8 (Version None)
Quarter: 2007Q4

REPORT INFORMATION
  Report Type: 
  Country: None (occurrence: None)
  Receive Date: 20071109
  Receipt Date: 20071030
  Transmission Date: 20080405
  Serious: Yes (Death)
  Sender: FDA-Public Use
  Company Number: A-CH2007-18208

PATIENT
  Age: 77 Year
  Sex: Male

DRUGS (7)
  1. TRACLEER [Suspect]
     Indication: PULMONARY HYPERTENSION
     Dosage: 62.5 MG, BID, ORAL
     Route: 048
     Dates: start: 20070829, end: 20070922
  2. LISINOPRIL [Concomitant]
  3. PLAVIX [Concomitant]
  4. LASIX [Concomitant]
  5. NEXIUM [Concomitant]
  6. SERETIDE (SALMETEROL, FLUTICASONE PROPIONATE) [Concomitant]
  7. OXYGEN (OXYGEN) [Concomitant]

REACTIONS (2)
  - CARDIO-RESPIRATORY ARREST [None]
  - SUDDEN DEATH [None]
